FAERS Safety Report 25498279 (Version 1)
Quarter: 2025Q3

REPORT INFORMATION
  Report Type: Report from Study
  Country: IN (occurrence: IN)
  Receive Date: 20250701
  Receipt Date: 20250701
  Transmission Date: 20251020
  Serious: Yes (Other)
  Sender: CIPLA
  Company Number: IN-CIPLA LTD.-2025IN07603

PATIENT

DRUGS (7)
  1. SPIRONOLACTONE\TORSEMIDE [Suspect]
     Active Substance: SPIRONOLACTONE\TORSEMIDE
     Indication: Diuretic therapy
     Route: 048
  2. IPRATROPIUM BROMIDE\LEVALBUTEROL SULFATE [Suspect]
     Active Substance: IPRATROPIUM BROMIDE\LEVALBUTEROL SULFATE
     Indication: Chronic obstructive pulmonary disease
     Route: 048
  3. BUDESONIDE [Suspect]
     Active Substance: BUDESONIDE
     Indication: Chronic obstructive pulmonary disease
     Route: 048
  4. NOVASTAT CV [Concomitant]
     Indication: Product used for unknown indication
     Dosage: 1 DOSAGE FORM (75/20), QD, STRENGTH: 75/20
     Route: 065
  5. VALENTAS [Concomitant]
     Indication: Product used for unknown indication
     Dosage: 25 MILLIGRAM, BID, STRENGTH:50 MILLIGRAM
     Route: 065
  6. BISOPROLOL FUMARATE [Concomitant]
     Active Substance: BISOPROLOL FUMARATE
     Indication: Product used for unknown indication
     Dosage: 2.5 MILLIGRAM, QD
     Route: 065
  7. OXRA [Concomitant]
     Indication: Product used for unknown indication
     Dosage: 10 MILLIGRAM, QD
     Route: 065

REACTIONS (3)
  - Myocardial infarction [Not Recovered/Not Resolved]
  - Burning sensation [Not Recovered/Not Resolved]
  - Blood glucose increased [Recovering/Resolving]

NARRATIVE: CASE EVENT DATE: 20240101
